FAERS Safety Report 13530105 (Version 5)
Quarter: 2017Q4

REPORT INFORMATION
  Report Type: Report from Study
  Country: None (occurrence: US)
  Receive Date: 20170509
  Receipt Date: 20171215
  Transmission Date: 20180320
  Serious: Yes (Hospitalization, Other)
  Sender: FDA-Public Use
  Company Number: US-ABBVIE-17K-163-1962314-00

PATIENT
  Sex: Male
  Weight: 92.62 kg

DRUGS (8)
  1. HUMIRA [Suspect]
     Active Substance: ADALIMUMAB
     Indication: RHEUMATOID ARTHRITIS
     Route: 058
     Dates: start: 2012
  2. POTASSIUM [Concomitant]
     Active Substance: POTASSIUM
     Indication: PROPHYLAXIS
  3. AMILORIDE [Concomitant]
     Active Substance: AMILORIDE
     Indication: PROPHYLAXIS
  4. AMILORIDE [Concomitant]
     Active Substance: AMILORIDE
     Indication: LIDDLE^S SYNDROME
  5. AMLODIPINE [Concomitant]
     Active Substance: AMLODIPINE BESYLATE
     Indication: HYPERTENSION
  6. POTASSIUM [Concomitant]
     Active Substance: POTASSIUM
     Indication: RENAL DISORDER
  7. POTASSIUM [Concomitant]
     Active Substance: POTASSIUM
     Indication: LIDDLE^S SYNDROME
  8. AMILORIDE [Concomitant]
     Active Substance: AMILORIDE
     Indication: RENAL DISORDER

REACTIONS (7)
  - Burns fourth degree [Not Recovered/Not Resolved]
  - Basal cell carcinoma [Not Recovered/Not Resolved]
  - Hypersensitivity [Unknown]
  - Vomiting [Recovered/Resolved]
  - Arthralgia [Not Recovered/Not Resolved]
  - Dizziness [Not Recovered/Not Resolved]
  - Therapeutic response shortened [Not Recovered/Not Resolved]

NARRATIVE: CASE EVENT DATE: 2015
